FAERS Safety Report 12317028 (Version 1)
Quarter: 2016Q2

REPORT INFORMATION
  Report Type: Spontaneous
  Country: US (occurrence: None)
  Receive Date: 20160428
  Receipt Date: 20160428
  Transmission Date: 20160815
  Serious: No
  Sender: FDA-Public Use
  Company Number: None

PATIENT
  Sex: Female

DRUGS (2)
  1. ACTOS [Concomitant]
     Active Substance: PIOGLITAZONE HYDROCHLORIDE
  2. METFORMIN [Suspect]
     Active Substance: METFORMIN HYDROCHLORIDE

REACTIONS (8)
  - Seizure [None]
  - Weight increased [None]
  - Cataract [None]
  - Diabetes mellitus inadequate control [None]
  - Stress [None]
  - Hypertension [None]
  - Cerebrovascular accident [None]
  - Asthma [None]
